FAERS Safety Report 8889317 (Version 5)
Quarter: 2015Q2

REPORT INFORMATION
  Report Type: Report from Study
  Country: FR (occurrence: FR)
  Receive Date: 20121106
  Receipt Date: 20150601
  Transmission Date: 20150821
  Serious: Yes (Hospitalization, Other)
  Sender: FDA-Public Use
  Company Number: FR-UCBSA-062171

PATIENT
  Sex: Male
  Weight: 117 kg

DRUGS (9)
  1. SPECIAFOLDINE [Concomitant]
     Active Substance: FOLIC ACID
     Dosage: 20 MG
     Dates: start: 20121006
  2. UVEDOSE [Concomitant]
     Active Substance: CHOLECALCIFEROL
     Indication: OSTEOPOROSIS PROPHYLAXIS
     Dosage: ONE AMPOULE EVERY TWO MONTHS
     Dates: start: 2008
  3. APRANAX [Concomitant]
     Active Substance: NAPROXEN
     Indication: RHEUMATOID ARTHRITIS
     Dosage: 550 MG, 2X/DAY (BID)
     Route: 048
     Dates: start: 20020112
  4. BIPRETERAX [Concomitant]
     Active Substance: INDAPAMIDE\PERINDOPRIL
     Indication: CARDIAC FAILURE
  5. METHOTREXATE [Concomitant]
     Active Substance: METHOTREXATE
     Indication: RHEUMATOID ARTHRITIS
     Dosage: 25 MG, WEEKLY (QW)
     Route: 048
     Dates: start: 200912
  6. SPECIAFOLDINE [Concomitant]
     Active Substance: FOLIC ACID
     Indication: PROPHYLAXIS
     Dosage: 15 MG, WEEKLY (QW)
     Dates: start: 200912
  7. METHOTREXATE [Concomitant]
     Active Substance: METHOTREXATE
     Dosage: 30 MG, WEEKLY (QW)
     Dates: start: 20121115
  8. BIPRETERAX [Concomitant]
     Active Substance: INDAPAMIDE\PERINDOPRIL
     Indication: HYPERTENSION
     Dosage: DRUG STRENGTH: 10MG/2.5MG
     Dates: start: 20110706
  9. CERTOLIZUMAB PEGOL RA [Suspect]
     Active Substance: CERTOLIZUMAB PEGOL
     Indication: RHEUMATOID ARTHRITIS
     Dosage: 400 MG EVERY TWO WEEKS AND THEN 200 MG EVERY TWO WEEKS
     Route: 058
     Dates: start: 20120125, end: 20121017

REACTIONS (4)
  - Atrial flutter [Recovered/Resolved]
  - Asthenia [Unknown]
  - Tetany [Unknown]
  - Adverse event [Unknown]

NARRATIVE: CASE EVENT DATE: 2012
